FAERS Safety Report 16549657 (Version 2)
Quarter: 2019Q4

REPORT INFORMATION
  Report Type: Spontaneous
  Country: US (occurrence: US)
  Receive Date: 20190710
  Receipt Date: 20191017
  Transmission Date: 20200122
  Serious: Yes (Other)
  Sender: FDA-Public Use
  Company Number: US-JNJFOC-20190631195

PATIENT
  Sex: Female

DRUGS (6)
  1. FOLIC ACID. [Concomitant]
     Active Substance: FOLIC ACID
  2. METHOTREXATE. [Concomitant]
     Active Substance: METHOTREXATE
     Indication: ARTHRITIS
     Dates: start: 2011
  3. SIMPONI [Suspect]
     Active Substance: GOLIMUMAB
     Indication: RHEUMATOID ARTHRITIS
     Route: 058
     Dates: end: 201902
  4. OMEGA 3                            /01334101/ [Concomitant]
     Active Substance: OMEGA-3 FATTY ACIDS
  5. RALOXIFENE                         /01303202/ [Concomitant]
     Active Substance: RALOXIFENE HYDROCHLORIDE
     Indication: SINUS DISORDER
     Route: 065
     Dates: start: 2017
  6. MONTELUKAST                        /01362602/ [Concomitant]
     Active Substance: MONTELUKAST SODIUM
     Indication: SINUS DISORDER
     Route: 065
     Dates: start: 2017

REACTIONS (1)
  - Rheumatoid arthritis [Not Recovered/Not Resolved]
